FAERS Safety Report 9145689 (Version 2)
Quarter: 2016Q1

REPORT INFORMATION
  Report Type: Report from Study
  Country: SE (occurrence: SE)
  Receive Date: 20130307
  Receipt Date: 20160202
  Transmission Date: 20160526
  Serious: Yes (Life-Threatening, Hospitalization, Other)
  Sender: FDA-Public Use
  Company Number: SE-BRISTOL-MYERS SQUIBB COMPANY-16676470

PATIENT
  Age: 65 Year
  Sex: Female

DRUGS (6)
  1. REMICADE [Suspect]
     Active Substance: INFLIXIMAB
     Indication: RHEUMATOID ARTHRITIS
     Dosage: 20DEC07. LAST INF: 20MAY09  STRENGTH:REMICADE POWDER FOR CONCENTRATE FOR SOLUTION FOR INF 100 MG
     Route: 042
     Dates: start: 20071220
  2. PREDNISOLONE. [Concomitant]
     Active Substance: PREDNISOLONE
     Indication: PRODUCT USED FOR UNKNOWN INDICATION
     Route: 065
  3. ABATACEPT [Suspect]
     Active Substance: ABATACEPT
     Indication: RHEUMATOID ARTHRITIS
     Dosage: 750 MG, UNK
     Route: 042
     Dates: start: 20101013, end: 20120206
  4. MABTHERA [Concomitant]
     Active Substance: RITUXIMAB
     Indication: PRODUCT USED FOR UNKNOWN INDICATION
     Dosage: 2 DOSES WERE GIVEN ON 21JAN10 AND 8FEB10
     Route: 065
  5. IMUREL [Suspect]
     Active Substance: AZATHIOPRINE SODIUM
     Indication: RHEUMATOID ARTHRITIS
     Dosage: STRENGTH:IMUREL FILM COATED TABLETS 50 MG
     Route: 048
     Dates: start: 20050921, end: 20120308
  6. HUMIRA [Suspect]
     Active Substance: ADALIMUMAB
     Indication: RHEUMATOID ARTHRITIS
     Dosage: HUMIRA SOLUTION FOR INJECTION
     Route: 058
     Dates: start: 20090603

REACTIONS (2)
  - Off label use [Unknown]
  - Breast cancer female [Unknown]

NARRATIVE: CASE EVENT DATE: 20111208
